FAERS Safety Report 25180663 (Version 4)
Quarter: 2025Q2

REPORT INFORMATION
  Report Type: Spontaneous
  Country: US (occurrence: US)
  Receive Date: 20250409
  Receipt Date: 20250507
  Transmission Date: 20250716
  Serious: No
  Sender: VERTEX
  Company Number: US-VERTEX PHARMACEUTICALS-2025-005425

PATIENT

DRUGS (4)
  1. JOURNAVX [Suspect]
     Active Substance: SUZETRIGINE
     Indication: Pain
     Route: 048
     Dates: start: 202503
  2. JOURNAVX [Suspect]
     Active Substance: SUZETRIGINE
     Indication: Ehlers-Danlos syndrome
  3. JOURNAVX [Suspect]
     Active Substance: SUZETRIGINE
     Indication: Mast cell activation syndrome
  4. JOURNAVX [Suspect]
     Active Substance: SUZETRIGINE
     Indication: Fibromyalgia

REACTIONS (5)
  - Fatigue [Not Recovered/Not Resolved]
  - Nausea [Recovered/Resolved]
  - Dizziness [Unknown]
  - Flushing [Unknown]
  - Off label use [Unknown]

NARRATIVE: CASE EVENT DATE: 20250301
